FAERS Safety Report 14326237 (Version 1)
Quarter: 2017Q4

REPORT INFORMATION
  Report Type: Spontaneous
  Country: US (occurrence: US)
  Receive Date: 20171227
  Receipt Date: 20171227
  Transmission Date: 20180321
  Serious: Yes (Other)
  Sender: FDA-Public Use
  Company Number: US-CIPLA LTD.-2017US26154

PATIENT

DRUGS (1)
  1. CYCLOBENZAPRINE. [Suspect]
     Active Substance: CYCLOBENZAPRINE
     Dosage: UNK
     Route: 065

REACTIONS (2)
  - Ulcer haemorrhage [Unknown]
  - Allergic reaction to excipient [Unknown]
